FAERS Safety Report 7390415-4 (Version None)
Quarter: 2011Q2

REPORT INFORMATION
  Report Type: 
  Country: None (occurrence: None)
  Receive Date: 20110401
  Receipt Date: 20110329
  Transmission Date: 20111010
  Serious: Yes (Hospitalization)
  Sender: FDA-Public Use
  Company Number: GR-AMGEN-GRCSP2011016805

PATIENT
  Age: 80 Year
  Sex: Male

DRUGS (3)
  1. PROLIA [Suspect]
     Indication: PATHOLOGICAL FRACTURE
  2. PROLIA [Suspect]
     Indication: OSTEITIS DEFORMANS
     Dosage: UNK
     Dates: start: 20110201
  3. ONE ALPHA [Concomitant]

REACTIONS (2)
  - ALTERED STATE OF CONSCIOUSNESS [None]
  - HYPOCALCAEMIA [None]
